FAERS Safety Report 24118461 (Version 2)
Quarter: 2025Q3

REPORT INFORMATION
  Report Type: Report from Study
  Country: CA (occurrence: CA)
  Receive Date: 20240722
  Receipt Date: 20250925
  Transmission Date: 20251020
  Serious: Yes (Other)
  Sender: Alvotech
  Company Number: CA-JAMP PHARMA CORPORATION-2023-JAM-CA-02421

PATIENT
  Age: 76 Year
  Sex: Female

DRUGS (1)
  1. SIMLANDI [Suspect]
     Active Substance: ADALIMUMAB-RYVK
     Indication: Rheumatoid arthritis
     Dosage: 40 MILLIGRAM, EVERY OTHER WEEK
     Route: 058
     Dates: start: 20230610

REACTIONS (7)
  - Pneumonia [Unknown]
  - Sciatica [Not Recovered/Not Resolved]
  - Movement disorder [Unknown]
  - Fall [Unknown]
  - Weight decreased [Unknown]
  - Influenza [Unknown]
  - Increased appetite [Unknown]

NARRATIVE: CASE EVENT DATE: 20231201
